FAERS Safety Report 4409848-0 (Version None)
Quarter: 2004Q3

REPORT INFORMATION
  Report Type: 
  Country: None (occurrence: None)
  Receive Date: 20040728
  Receipt Date: 20040105
  Transmission Date: 20050211
  Serious: No
  Sender: FDA-Public Use
  Company Number: US-GLAXOSMITHKLINE-A0491375A

PATIENT
  Age: 80 Year
  Sex: Female

DRUGS (7)
  1. DYAZIDE [Suspect]
     Dosage: 1CAP PER DAY
     Route: 048
  2. DIOVAN [Concomitant]
  3. ASPIRIN [Concomitant]
  4. ATENOLOL [Concomitant]
  5. GLUCOSAMINE [Concomitant]
  6. COD LIVER OIL [Concomitant]
  7. CALCIUM [Concomitant]

REACTIONS (4)
  - ARTHRITIS [None]
  - BALANCE DISORDER [None]
  - BLOOD PRESSURE INCREASED [None]
  - THROAT TIGHTNESS [None]
